FAERS Safety Report 22648048 (Version 1)
Quarter: 2023Q2

REPORT INFORMATION
  Report Type: Spontaneous
  Country: US (occurrence: US)
  Receive Date: 20230628
  Receipt Date: 20230628
  Transmission Date: 20230722
  Serious: No
  Sender: FDA-Public Use
  Company Number: US-PRINSTON PHARMACEUTICAL INC.-2022PRN00188

PATIENT
  Age: 38 Year
  Sex: Male
  Weight: 87.075 kg

DRUGS (6)
  1. BUPROPION HYDROCHLORIDE [Suspect]
     Active Substance: BUPROPION HYDROCHLORIDE
     Indication: Smoking cessation therapy
     Dosage: 150 MG, 1X/DAY
     Route: 048
     Dates: start: 20220520, end: 20220522
  2. BUPROPION HYDROCHLORIDE [Suspect]
     Active Substance: BUPROPION HYDROCHLORIDE
     Dosage: 300 MG, 1X/DAY
     Route: 048
     Dates: start: 20220523, end: 20220525
  3. VITAMINS [Concomitant]
     Active Substance: VITAMINS
  4. HERBALS\TURMERIC [Concomitant]
     Active Substance: HERBALS\TURMERIC
  5. FISH OIL [Concomitant]
     Active Substance: FISH OIL
  6. HERBALS [Concomitant]
     Active Substance: HERBALS

REACTIONS (6)
  - Skin mass [Not Recovered/Not Resolved]
  - Eye pain [Unknown]
  - Chest pain [Recovered/Resolved]
  - Depression [Recovered/Resolved]
  - Mood altered [Recovered/Resolved]
  - Off label use [Recovered/Resolved]

NARRATIVE: CASE EVENT DATE: 20220520
